FAERS Safety Report 8159824-X (Version None)
Quarter: 2012Q1

REPORT INFORMATION
  Report Type: 
  Country: None (occurrence: None)
  Receive Date: 20120223
  Receipt Date: 20120220
  Transmission Date: 20120608
  Serious: Yes (Other)
  Sender: FDA-Public Use
  Company Number: US-PFIZER INC-2012044899

PATIENT
  Sex: Female
  Weight: 71 kg

DRUGS (1)
  1. XALATAN [Suspect]
     Indication: GLAUCOMA
     Dosage: 1 DROP IN BOTH EYES ONCE A DAY

REACTIONS (3)
  - BLOOD CHOLESTEROL INCREASED [None]
  - CAROTID ARTERY OCCLUSION [None]
  - INTRAOCULAR PRESSURE INCREASED [None]
